FAERS Safety Report 7277108-9 (Version None)
Quarter: 2011Q1

REPORT INFORMATION
  Report Type: 
  Country: None (occurrence: None)
  Receive Date: 20110202
  Receipt Date: 20110202
  Transmission Date: 20110831
  Serious: Yes (Disabling)
  Sender: FDA-Public Use
  Company Number: None

PATIENT
  Sex: Male
  Weight: 108.8633 kg

DRUGS (1)
  1. CIPROFLOXACIN HCL [Suspect]
     Indication: INFECTION
     Dosage: 1 2 TIMES MOUTH
     Route: 048
     Dates: start: 20100607, end: 20100610

REACTIONS (3)
  - FLUSHING [None]
  - BLOOD CREATININE INCREASED [None]
  - TENDON PAIN [None]
